FAERS Safety Report 12732812 (Version 1)
Quarter: 2016Q3

REPORT INFORMATION
  Report Type: Spontaneous
  Country: US (occurrence: US)
  Receive Date: 20160912
  Receipt Date: 20160912
  Transmission Date: 20161109
  Serious: Yes (Death)
  Sender: FDA-Public Use
  Company Number: PHEH2016US022889

PATIENT
  Sex: Female
  Weight: 84 kg

DRUGS (1)
  1. AFINITOR [Suspect]
     Active Substance: EVEROLIMUS
     Indication: ABDOMINAL DISTENSION
     Dosage: 10 MG, QD
     Route: 048
     Dates: start: 20140506

REACTIONS (2)
  - Product use issue [Unknown]
  - Death [Fatal]
